FAERS Safety Report 21384233 (Version 2)
Quarter: 2023Q1

REPORT INFORMATION
  Report Type: Report from Study
  Country: CA (occurrence: CA)
  Receive Date: 20220928
  Receipt Date: 20230318
  Transmission Date: 20230417
  Serious: Yes (Hospitalization, Other)
  Sender: FDA-Public Use
  Company Number: CA-002147023-NVSC2020CA263542

PATIENT
  Age: 50 Year
  Sex: Female

DRUGS (1)
  1. AIMOVIG [Suspect]
     Active Substance: ERENUMAB-AOOE
     Indication: Migraine
     Dosage: UNK
     Route: 065
     Dates: start: 20190301

REACTIONS (6)
  - Nephrolithiasis [Unknown]
  - Renal colic [Unknown]
  - Osteomyelitis [Unknown]
  - Pain [Unknown]
  - Vomiting [Unknown]
  - Dehydration [Unknown]
